FAERS Safety Report 8443333 (Version 3)
Quarter: 2012Q4

REPORT INFORMATION
  Report Type: Spontaneous
  Country: US (occurrence: None)
  Receive Date: 20120227
  Receipt Date: 20121012
  Transmission Date: 20130627
  Serious: Yes (Other)
  Sender: FDA-Public Use
  Company Number: 1202-082

PATIENT
  Age: 82 Year
  Sex: Female
  Weight: 82.1 kg

DRUGS (7)
  1. EYLEA (AFLIBERCEPT) (INJECTION) (AFLIBERCEPT) [Suspect]
     Indication: CHOROIDAL NEOVASCULARISATION
     Dosage: 2 MG, INTRAVITREAL
     Route: 031
     Dates: start: 20120126
  2. ALPRAZOLAM [Concomitant]
  3. ASPIRIN [Concomitant]
  4. CITALOPRAM HYDROBROMIDE [Concomitant]
  5. AREDS VITAMINS (ICAPS AREDS) [Concomitant]
  6. SIMVASTATIN [Concomitant]
  7. SPIRONOLACTONE HCTZ (ALDACTAZIDE A) [Concomitant]

REACTIONS (4)
  - Eye inflammation [None]
  - Visual acuity reduced [None]
  - Vitreous haemorrhage [None]
  - Retinal haemorrhage [None]
